FAERS Safety Report 8438517-5 (Version None)
Quarter: 2012Q2

REPORT INFORMATION
  Report Type: 
  Country: None (occurrence: None)
  Receive Date: 20120615
  Receipt Date: 20120607
  Transmission Date: 20120825
  Serious: Yes (Hospitalization)
  Sender: FDA-Public Use
  Company Number: US-BIOGENIDEC-2012BI020277

PATIENT
  Age: 66 Year
  Sex: Female

DRUGS (2)
  1. AVONEX [Suspect]
     Indication: MULTIPLE SCLEROSIS
     Route: 030
     Dates: start: 19970901
  2. AVONEX [Suspect]
     Route: 030

REACTIONS (5)
  - CONFUSIONAL STATE [None]
  - BRAIN OEDEMA [None]
  - HYDROCEPHALUS [None]
  - CEREBRAL HAEMORRHAGE [None]
  - CEREBRAL ATROPHY [None]
